FAERS Safety Report 6826314-3 (Version None)
Quarter: 2010Q3

REPORT INFORMATION
  Report Type: 
  Country: None (occurrence: None)
  Receive Date: 20100709
  Receipt Date: 20100629
  Transmission Date: 20110219
  Serious: No
  Sender: FDA-Public Use
  Company Number: PHHY2008JP11873

PATIENT
  Age: 20 Year
  Sex: Female

DRUGS (8)
  1. CERTICAN [Suspect]
     Indication: HEART TRANSPLANT
     Dosage: 1.5 MG/DAY
     Route: 048
     Dates: start: 20070619, end: 20070624
  2. CERTICAN [Suspect]
     Dosage: 1.75 MG/DAY
     Dates: start: 20070625, end: 20070704
  3. CERTICAN [Suspect]
     Dosage: 2 MG/DAY
     Dates: start: 20070712
  4. TACROLIMUS [Suspect]
     Indication: HEART TRANSPLANT
     Dosage: 3 MG
     Route: 048
     Dates: start: 20050522
  5. TACROLIMUS [Suspect]
     Dosage: 2 MG
     Route: 048
     Dates: start: 20070619
  6. MYCOPHENOLATE MOFETIL [Concomitant]
     Indication: HEART TRANSPLANT
  7. DIOVAN [Concomitant]
     Indication: HYPERTENSION
     Dosage: 80 MG
     Route: 048
     Dates: start: 20080508
  8. LIPITOR [Concomitant]
     Indication: HYPERLIPIDAEMIA
     Dosage: 10 MG
     Route: 048
     Dates: start: 20040906

REACTIONS (3)
  - BLOOD PRESSURE SYSTOLIC DECREASED [None]
  - STOMATITIS [None]
  - WHITE BLOOD CELL COUNT DECREASED [None]
